FAERS Safety Report 25737359 (Version 4)
Quarter: 2025Q4

REPORT INFORMATION
  Report Type: Spontaneous
  Country: US (occurrence: US)
  Receive Date: 20250828
  Receipt Date: 20251009
  Transmission Date: 20260118
  Serious: No
  Sender: ABBVIE
  Company Number: US-ABBVIE-6427778

PATIENT
  Age: 60 Year
  Sex: Female
  Weight: 61.23 kg

DRUGS (19)
  1. ARMOUR THYROID [Suspect]
     Active Substance: THYROID, PORCINE
     Indication: Hypothyroidism
     Dosage: PRODUCT (THYROID POWDER 15MG TAB (TBD))?FORM STRENGTH: 15 MILLIGRAM
     Route: 048
     Dates: start: 20250821
  2. ARMOUR THYROID [Suspect]
     Active Substance: THYROID, PORCINE
     Indication: Hypothyroidism
     Route: 048
     Dates: start: 202504, end: 20250729
  3. ARMOUR THYROID [Suspect]
     Active Substance: THYROID, PORCINE
     Indication: Hypothyroidism
     Route: 048
     Dates: start: 2025, end: 2025
  4. Holy Basil Leaf [Concomitant]
     Indication: Product used for unknown indication
     Dosage: HERBAL TEA
  5. BERBERINE [Concomitant]
     Active Substance: BERBERINE
     Indication: Product used for unknown indication
  6. CHOLINE [Concomitant]
     Active Substance: CHOLINE
     Indication: Product used for unknown indication
  7. FOLATE SODIUM [Concomitant]
     Active Substance: FOLATE SODIUM
     Indication: Product used for unknown indication
  8. VITAMIN B COMPLEX [Concomitant]
     Active Substance: CYANOCOBALAMIN\DEXPANTHENOL\NIACINAMIDE\PYRIDOXINE HYDROCHLORIDE\RIBOFLAVIN 5^-PHOSPHATE SODIUM\THIA
     Indication: Product used for unknown indication
  9. ZINC [Concomitant]
     Active Substance: ZINC
     Indication: Product used for unknown indication
  10. VITAMIN B1 [Concomitant]
     Active Substance: THIAMINE HYDROCHLORIDE
     Indication: Product used for unknown indication
  11. SELENIUM [Concomitant]
     Active Substance: SELENIUM
     Indication: Product used for unknown indication
  12. HERBALS\WITHANIA SOMNIFERA ROOT [Concomitant]
     Active Substance: HERBALS\WITHANIA SOMNIFERA ROOT
     Indication: Product used for unknown indication
     Dosage: HERBAL TEA
  13. LITHIUM [Concomitant]
     Active Substance: LITHIUM
     Indication: Product used for unknown indication
     Dosage: 150 MILLIGRAM DIRECT RELEASE
  14. Calcium complex [Concomitant]
     Indication: Product used for unknown indication
  15. ZINC [Concomitant]
     Active Substance: ZINC
     Indication: Product used for unknown indication
     Dosage: PRIMER
  16. METHYLPHENIDATE [Concomitant]
     Active Substance: METHYLPHENIDATE
     Indication: Product used for unknown indication
  17. BIOTIN [Concomitant]
     Active Substance: BIOTIN
     Indication: Product used for unknown indication
  18. CHONDROITIN SULFATE (BOVINE)\GLUCOSAMINE SULFATE [Concomitant]
     Active Substance: CHONDROITIN SULFATE (BOVINE)\GLUCOSAMINE SULFATE
     Indication: Product used for unknown indication
     Dosage: PX
  19. QUINIDINE [Concomitant]
     Active Substance: QUINIDINE
     Indication: Product used for unknown indication

REACTIONS (31)
  - Product odour abnormal [Not Recovered/Not Resolved]
  - Paraesthesia [Recovering/Resolving]
  - Haemoglobin increased [Recovering/Resolving]
  - Disturbance in attention [Recovering/Resolving]
  - Product storage error [Not Recovered/Not Resolved]
  - Hypoaesthesia oral [Recovering/Resolving]
  - Dizziness [Recovering/Resolving]
  - Hypothyroidism [Recovering/Resolving]
  - Loss of personal independence in daily activities [Recovered/Resolved]
  - Thyroxine free increased [Recovering/Resolving]
  - Anti-thyroid antibody increased [Recovering/Resolving]
  - Fall [Recovering/Resolving]
  - Headache [Recovering/Resolving]
  - Balance disorder [Recovering/Resolving]
  - Coordination abnormal [Recovering/Resolving]
  - Asthenia [Recovering/Resolving]
  - Paraesthesia oral [Recovering/Resolving]
  - Anti-thyroid antibody increased [Unknown]
  - Fatigue [Recovering/Resolving]
  - Dyspnoea [Recovering/Resolving]
  - Therapeutic product effect incomplete [Recovered/Resolved]
  - Abnormal sensation in eye [Recovering/Resolving]
  - Loss of personal independence in daily activities [Recovering/Resolving]
  - Sensory disturbance [Recovering/Resolving]
  - Blood thyroid stimulating hormone increased [Recovering/Resolving]
  - Feeling hot [Recovering/Resolving]
  - Stress [Recovered/Resolved]
  - Haematocrit increased [Recovering/Resolving]
  - Mean cell haemoglobin increased [Unknown]
  - Disturbance in attention [Recovering/Resolving]
  - Cognitive disorder [Recovering/Resolving]

NARRATIVE: CASE EVENT DATE: 20250101
